FAERS Safety Report 8982819 (Version 1)
Quarter: 2012Q4

REPORT INFORMATION
  Report Type: Report from Study
  Country: DK (occurrence: DK)
  Receive Date: 20121221
  Receipt Date: 20121221
  Transmission Date: 20130627
  Serious: Yes (Hospitalization)
  Sender: FDA-Public Use
  Company Number: DK-BAXTER-2012BAX027579

PATIENT
  Age: 66 Year
  Sex: Male
  Weight: 63 kg

DRUGS (12)
  1. SENDOXAN [Suspect]
     Indication: DIFFUSE LARGE B-CELL LYMPHOMA
     Route: 042
     Dates: start: 20110628
  2. SENDOXAN [Suspect]
     Route: 042
     Dates: start: 20110715
  3. RITUXIMAB [Suspect]
     Indication: DIFFUSE LARGE B-CELL LYMPHOMA
     Route: 042
     Dates: start: 20110627
  4. RITUXIMAB [Suspect]
     Route: 042
     Dates: start: 20110715
  5. PREDNISONE [Suspect]
     Indication: DIFFUSE LARGE B-CELL LYMPHOMA
     Route: 048
     Dates: start: 20110628
  6. PREDNISONE [Suspect]
     Route: 048
     Dates: start: 20110715
  7. DOXORUBICIN [Suspect]
     Indication: DIFFUSE LARGE B-CELL LYMPHOMA
     Route: 042
     Dates: start: 20110628
  8. DOXORUBICIN [Suspect]
     Route: 042
     Dates: start: 20110715
  9. VINCRISTINE [Suspect]
     Indication: DIFFUSE LARGE B-CELL LYMPHOMA
     Route: 042
     Dates: start: 20110628
  10. VINCRISTINE [Suspect]
     Route: 042
     Dates: start: 20110715
  11. GRANULOCYTE COLONY STIMULATING FACTOR [Suspect]
     Indication: DIFFUSE LARGE B-CELL LYMPHOMA
     Route: 058
     Dates: start: 20110629
  12. GRANULOCYTE COLONY STIMULATING FACTOR [Suspect]
     Route: 058
     Dates: start: 20110715

REACTIONS (1)
  - Pneumonia [Recovered/Resolved]
